FAERS Safety Report 6993142-8 (Version None)
Quarter: 2010Q3

REPORT INFORMATION
  Report Type: 
  Country: None (occurrence: None)
  Receive Date: 20100917
  Receipt Date: 20091016
  Transmission Date: 20110219
  Serious: No
  Sender: FDA-Public Use
  Company Number: US-ASTRAZENECA-2009UW14107

PATIENT
  Age: 47 Year
  Sex: Male
  Weight: 108.9 kg

DRUGS (8)
  1. SEROQUEL [Suspect]
     Indication: BIPOLAR DISORDER
     Route: 048
     Dates: start: 20020201, end: 20080101
  2. SEROQUEL [Suspect]
     Indication: SCHIZOPHRENIA
     Route: 048
     Dates: start: 20020201, end: 20080101
  3. ABILIFY [Concomitant]
     Dates: start: 20070101
  4. GEODON [Concomitant]
  5. HALDOL [Concomitant]
  6. RISPERDAL [Concomitant]
     Dates: start: 20080905, end: 20090130
  7. ZOLOFT [Concomitant]
     Dates: start: 20050325, end: 20050929
  8. MIRTAZAPINE [Concomitant]
     Dates: start: 20080905, end: 20090130

REACTIONS (4)
  - BLOOD CHOLESTEROL INCREASED [None]
  - HYPERLIPIDAEMIA [None]
  - OBESITY [None]
  - TYPE 2 DIABETES MELLITUS [None]
